FAERS Safety Report 14807495 (Version 1)
Quarter: 2018Q2

REPORT INFORMATION
  Report Type: Spontaneous
  Country: DE (occurrence: DE)
  Receive Date: 20180425
  Receipt Date: 20180425
  Transmission Date: 20180711
  Serious: Yes (Other)
  Sender: FDA-Public Use
  Company Number: DE-PFIZER INC-2018082510

PATIENT
  Age: 72 Year
  Sex: Male
  Weight: 72 kg

DRUGS (7)
  1. LYRICA [Suspect]
     Active Substance: PREGABALIN
     Dosage: 125 MG, DAILY (50 MG IN THE MORNING AND 75 MG IN THE EVENING
  2. PREGABALIN RATIOPHARM [Suspect]
     Active Substance: PREGABALIN
     Dosage: 350 MG, DAILY (150 MG IN THE MORNING AND 200 MG IN THE EVENING)
  3. LYRICA [Suspect]
     Active Substance: PREGABALIN
     Dosage: 125 MG, DAILY (50 MG IN THE MORNING AND 75 MG IN THE EVENING
  4. PREGABALIN RATIOPHARM [Suspect]
     Active Substance: PREGABALIN
     Dosage: 75 MG, 2X/DAY
  5. ATORVASTATIN [Concomitant]
     Active Substance: ATORVASTATIN
     Indication: HYPERCHOLESTEROLAEMIA
     Dosage: UNK, UNK (1 TABLET)
  6. PREGABALIN RATIOPHARM [Suspect]
     Active Substance: PREGABALIN
     Dosage: 75 MG, 2X/DAY (AT TIMES 100 MG)
     Dates: start: 201610
  7. PALLADON [Suspect]
     Active Substance: HYDROMORPHONE
     Dosage: 4 MG, 2X/DAY
     Dates: start: 201610

REACTIONS (6)
  - Impaired gastric emptying [Unknown]
  - Abdominal distension [Recovered/Resolved]
  - Gastrooesophageal reflux disease [Recovered/Resolved]
  - Sleep disorder [Unknown]
  - Gastrointestinal motility disorder [Recovered/Resolved]
  - Constipation [Unknown]
